FAERS Safety Report 9225455 (Version 2)
Quarter: 2013Q2

REPORT INFORMATION
  Report Type: Spontaneous
  Country: ZA (occurrence: None)
  Receive Date: 20130409
  Receipt Date: 20130417
  Transmission Date: 20140414
  Serious: Yes (Other)
  Sender: FDA-Public Use
  Company Number: AUR-APL-2013-02686

PATIENT
  Age: 42 Year
  Sex: Male

DRUGS (4)
  1. STAVUDINE [Suspect]
     Indication: HIV INFECTION
     Dates: start: 201003
  2. LAMIVUDINE [Suspect]
     Indication: HIV INFECTION
     Dates: start: 201003
  3. EFAVIRENZ [Suspect]
     Indication: HIV INFECTION
     Dates: start: 201003
  4. TENOFOVIR [Suspect]
     Indication: HIV INFECTION

REACTIONS (3)
  - Neuropathy peripheral [None]
  - Immune reconstitution inflammatory syndrome [None]
  - Hepatitis E [None]
